FAERS Safety Report 20684482 (Version 2)
Quarter: 2022Q2

REPORT INFORMATION
  Report Type: Spontaneous
  Country: AU (occurrence: AU)
  Receive Date: 20220407
  Receipt Date: 20220422
  Transmission Date: 20220721
  Serious: Yes (Death, Other)
  Sender: FDA-Public Use
  Company Number: AU-BRISTOL-MYERS SQUIBB COMPANY-2022-014712

PATIENT
  Age: 95 Year
  Sex: Female

DRUGS (1)
  1. REVLIMID [Suspect]
     Active Substance: LENALIDOMIDE
     Indication: Plasma cell myeloma
     Dosage: DOSE : CURRENT 15 MG, PREVIOUS N/A;     FREQ : CURRENT DAILY D1-21, PREVIOUS N/A
     Route: 065

REACTIONS (1)
  - Small intestinal obstruction [Fatal]
